FAERS Safety Report 13252344 (Version 2)
Quarter: 2017Q1

REPORT INFORMATION
  Report Type: Spontaneous
  Country: IL (occurrence: IL)
  Receive Date: 20170220
  Receipt Date: 20170301
  Transmission Date: 20170428
  Serious: Yes (Death, Other)
  Sender: FDA-Public Use
  Company Number: IL-ASTRAZENECA-2017SE16384

PATIENT
  Age: 89 Year
  Sex: Male

DRUGS (3)
  1. PLAVIX [Concomitant]
     Active Substance: CLOPIDOGREL BISULFATE
  2. BRILINTA [Suspect]
     Active Substance: TICAGRELOR
     Indication: ACUTE MYOCARDIAL INFARCTION
     Dosage: LOADING DOSE 180 MG
     Route: 048
     Dates: start: 20170212
  3. ASPIRIN. [Concomitant]
     Active Substance: ASPIRIN

REACTIONS (2)
  - Myocardial infarction [Fatal]
  - Dyspnoea [Unknown]

NARRATIVE: CASE EVENT DATE: 20170212
